FAERS Safety Report 8691164 (Version 4)
Quarter: 2012Q4

REPORT INFORMATION
  Report Type: Report from Study
  Country: US (occurrence: US)
  Receive Date: 20120730
  Receipt Date: 20120912
  Transmission Date: 20130627
  Serious: Yes (Hospitalization)
  Sender: FDA-Public Use
  Company Number: US-NOVOPROD-356195

PATIENT
  Age: 74 Year
  Sex: Male
  Weight: 104.3 kg

DRUGS (3)
  1. LIRAGLUTIDE FLEXPEN [Suspect]
     Indication: TYPE 2 DIABETES MELLITUS
     Dosage: 1.2 mg, qd
     Route: 058
     Dates: start: 20110426
  2. ASPIRIN [Concomitant]
     Indication: PROPHYLAXIS
     Dosage: 81 mg, qd
     Dates: start: 2005
  3. PLAVIX [Concomitant]
     Indication: PROPHYLAXIS
     Dosage: 75 mg, qd
     Dates: start: 201203

REACTIONS (2)
  - Peripheral ischaemia [Recovered/Resolved]
  - Peripheral revascularisation [Recovered/Resolved]
